FAERS Safety Report 18693122 (Version 1)
Quarter: 2021Q1

REPORT INFORMATION
  Report Type: Report from Study
  Country: None (occurrence: IE)
  Receive Date: 20210104
  Receipt Date: 20210104
  Transmission Date: 20210419
  Serious: Yes (Other)
  Sender: FDA-Public Use
  Company Number: IE-BIOVITRUM-2014SE92753

PATIENT
  Age: 2 Month
  Sex: Male

DRUGS (1)
  1. SYNAGIS [Suspect]
     Active Substance: PALIVIZUMAB
     Indication: LARYNGOMALACIA
     Route: 030
     Dates: start: 20141114

REACTIONS (4)
  - Laryngomalacia [Unknown]
  - Diarrhoea [Recovered/Resolved]
  - Off label use [Unknown]
  - Haematochezia [Recovered/Resolved]

NARRATIVE: CASE EVENT DATE: 20141114
